FAERS Safety Report 18563625 (Version 1)
Quarter: 2020Q4

REPORT INFORMATION
  Report Type: Spontaneous
  Country: DE (occurrence: DE)
  Receive Date: 20201201
  Receipt Date: 20201201
  Transmission Date: 20210114
  Serious: Yes (Death, Hospitalization)
  Sender: FDA-Public Use
  Company Number: NVSC2020DE319136

PATIENT
  Age: 82 Year
  Sex: Male
  Weight: 76 kg

DRUGS (8)
  1. ENTRESTO [Suspect]
     Active Substance: SACUBITRIL\VALSARTAN
     Indication: CARDIAC FAILURE
     Dosage: UNK (24/26)
     Route: 048
  2. AMIODARON [Concomitant]
     Active Substance: AMIODARONE
     Indication: ATRIAL FIBRILLATION
     Dosage: 200 MG (4 YEARS)
     Route: 048
  3. TOREM [Concomitant]
     Active Substance: TORSEMIDE
     Indication: CARDIAC FAILURE
     Dosage: 15 MG (2 YEARS)
     Route: 048
  4. L-THYROXINE [Concomitant]
     Active Substance: LEVOTHYROXINE
     Indication: HYPOTHYROIDISM
     Dosage: 25 UG (4 YEARS)
     Route: 048
  5. PIPAMPERONE [Concomitant]
     Active Substance: PIPAMPERONE
     Indication: RESTLESSNESS
     Dosage: 20 MG (1 YEAR)
     Route: 048
  6. XIPAMIDE [Concomitant]
     Active Substance: XIPAMIDE
     Indication: OEDEMA
     Dosage: 10 MG
     Route: 048
  7. JANUMET [Concomitant]
     Active Substance: METFORMIN HYDROCHLORIDE\SITAGLIPTIN PHOSPHATE
     Indication: TYPE 2 DIABETES MELLITUS
     Dosage: UNK
     Route: 048
  8. LIXIANA [Concomitant]
     Active Substance: EDOXABAN TOSYLATE
     Indication: ATRIAL FIBRILLATION
     Dosage: 30 MG
     Route: 048

REACTIONS (2)
  - Hypotension [Fatal]
  - Hypernatraemia [Fatal]

NARRATIVE: CASE EVENT DATE: 20191127
